FAERS Safety Report 18728960 (Version 2)
Quarter: 2021Q1

REPORT INFORMATION
  Report Type: Report from Study
  Country: HK (occurrence: HK)
  Receive Date: 20210112
  Receipt Date: 20210115
  Transmission Date: 20210419
  Serious: Yes (Death)
  Sender: FDA-Public Use
  Company Number: NVSC2021HK002844

PATIENT
  Age: 73 Year
  Sex: Female

DRUGS (1)
  1. INC280 [Suspect]
     Active Substance: CAPMATINIB
     Indication: LUNG NEOPLASM MALIGNANT
     Dosage: 400 MG, BID
     Route: 065
     Dates: start: 20201105

REACTIONS (1)
  - Death [Fatal]
